FAERS Safety Report 10008950 (Version 2)
Quarter: 2014Q2

REPORT INFORMATION
  Report Type: Spontaneous
  Country: CN (occurrence: CN)
  Receive Date: 20140313
  Receipt Date: 20140417
  Transmission Date: 20141212
  Serious: Yes (Hospitalization)
  Sender: FDA-Public Use
  Company Number: CN-ROCHE-1364800

PATIENT
  Age: 58 Year
  Sex: Female

DRUGS (5)
  1. BEVACIZUMAB [Suspect]
     Indication: COLON CANCER
     Route: 042
     Dates: end: 20110521
  2. OXALIPLATIN [Suspect]
     Indication: COLON CANCER
     Route: 042
     Dates: end: 20110521
  3. TETRAHYDROFOLATE [Suspect]
     Indication: COLON CANCER
     Dosage: 0.68
     Route: 042
     Dates: end: 20110521
  4. 5-FU [Suspect]
     Indication: COLON CANCER
     Dosage: FOR 1 DAY
     Route: 042
     Dates: end: 20110521
  5. 5-FU [Suspect]
     Dosage: CONTINUOUS INTRAVENOUS DRIP FOR 46 HOURS.
     Route: 042

REACTIONS (2)
  - Coma [Recovering/Resolving]
  - Posterior reversible encephalopathy syndrome [Recovering/Resolving]
